FAERS Safety Report 5576583-5 (Version None)
Quarter: 2007Q4

REPORT INFORMATION
  Report Type: 
  Country: None (occurrence: None)
  Receive Date: 20071228
  Receipt Date: 20071030
  Transmission Date: 20080405
  Serious: No
  Sender: FDA-Public Use
  Company Number: A0690549A

PATIENT
  Age: 54 Year
  Sex: Male

DRUGS (5)
  1. FLOVENT [Suspect]
     Indication: DRUG USE FOR UNKNOWN INDICATION
     Dosage: 200MCG TWICE PER DAY
     Route: 055
     Dates: start: 20071026
  2. SPIRIVA [Concomitant]
  3. HUMALOG [Concomitant]
  4. HUMULIN R [Concomitant]
  5. LANTUS [Concomitant]

REACTIONS (3)
  - COUGH [None]
  - DRY MOUTH [None]
  - DRY THROAT [None]
